FAERS Safety Report 13905973 (Version 1)
Quarter: 2017Q3

REPORT INFORMATION
  Report Type: Spontaneous
  Country: US (occurrence: US)
  Receive Date: 20170825
  Receipt Date: 20170825
  Transmission Date: 20171127
  Serious: Yes (Hospitalization)
  Sender: FDA-Public Use
  Company Number: None

PATIENT
  Sex: Female
  Weight: 52.65 kg

DRUGS (4)
  1. ACTONEL [Suspect]
     Active Substance: RISEDRONATE SODIUM
     Indication: OSTEOPOROSIS
     Dosage: ?          OTHER FREQUENCY:1XWEEK;?
     Route: 048
     Dates: start: 20100101, end: 20121231
  2. BONIVA [Suspect]
     Active Substance: IBANDRONATE SODIUM
     Indication: OSTEOPOROSIS
     Dates: start: 20080101, end: 20091231
  3. VITAMIN D3 [Concomitant]
     Active Substance: CHOLECALCIFEROL
  4. K2 [Concomitant]
     Active Substance: JWH-018

REACTIONS (2)
  - Atypical femur fracture [None]
  - Fall [None]

NARRATIVE: CASE EVENT DATE: 20160326
